FAERS Safety Report 5396825-9 (Version None)
Quarter: 2007Q3

REPORT INFORMATION
  Report Type: 
  Country: None (occurrence: None)
  Receive Date: 20070725
  Receipt Date: 20061006
  Transmission Date: 20080115
  Serious: No
  Sender: FDA-Public Use
  Company Number: US-AMGEN-KDL196232

PATIENT
  Sex: Female
  Weight: 73.5 kg

DRUGS (2)
  1. PROCRIT [Suspect]
     Indication: ANAEMIA OF MALIGNANT DISEASE
     Dates: start: 20050101, end: 20060915
  2. VICODIN [Concomitant]

REACTIONS (11)
  - DRY SKIN [None]
  - EYE SWELLING [None]
  - FEELING HOT [None]
  - HAIR GROWTH ABNORMAL [None]
  - LOCAL SWELLING [None]
  - PORPHYRIA [None]
  - RASH [None]
  - SKIN DISCOLOURATION [None]
  - SKIN DISORDER [None]
  - SKIN EXFOLIATION [None]
  - SWELLING FACE [None]
